FAERS Safety Report 24878307 (Version 1)
Quarter: 2025Q1

REPORT INFORMATION
  Report Type: Spontaneous
  Country: IN (occurrence: None)
  Receive Date: 20250123
  Receipt Date: 20250123
  Transmission Date: 20250408
  Serious: Yes (Other)
  Sender: ENCUBE ETHICALS
  Company Number: IN-Encube-001591

PATIENT
  Age: 6 Decade
  Sex: Male

DRUGS (1)
  1. TRIAMCINOLONE ACETONIDE [Suspect]
     Active Substance: TRIAMCINOLONE ACETONIDE
     Indication: Diabetic retinal oedema

REACTIONS (2)
  - Central serous chorioretinopathy [Recovered/Resolved]
  - Off label use [Unknown]
